FAERS Safety Report 8615940-7 (Version None)
Quarter: 2012Q3

REPORT INFORMATION
  Report Type: 
  Country: None (occurrence: None)
  Receive Date: 20120823
  Receipt Date: 20120817
  Transmission Date: 20120928
  Serious: Yes (Other)
  Sender: FDA-Public Use
  Company Number: JP-GLAXOSMITHKLINE-B0824061A

PATIENT
  Sex: Male

DRUGS (4)
  1. PAXIL [Suspect]
     Indication: PRODUCT USED FOR UNKNOWN INDICATION
     Route: 048
     Dates: start: 20110101
  2. REFLEX (JAPAN) [Concomitant]
     Route: 048
  3. PAXIL [Suspect]
     Dosage: 20MG PER DAY
     Route: 048
     Dates: start: 20120508
  4. PAXIL [Suspect]
     Dosage: 30MG PER DAY
     Route: 048
     Dates: end: 20120507

REACTIONS (4)
  - IRRITABILITY [None]
  - ATRIAL FIBRILLATION [None]
  - HYPERHIDROSIS [None]
  - ANXIETY [None]
